FAERS Safety Report 24936459 (Version 5)
Quarter: 2025Q2

REPORT INFORMATION
  Report Type: Spontaneous
  Country: CA (occurrence: CA)
  Receive Date: 20250206
  Receipt Date: 20250606
  Transmission Date: 20250716
  Serious: Yes (Hospitalization, Other)
  Sender: CELLTRION
  Company Number: CA-PFIZER INC-202500021719

PATIENT

DRUGS (4)
  1. INFLECTRA [Suspect]
     Active Substance: INFLIXIMAB-DYYB
     Indication: Psoriatic arthropathy
     Route: 042
     Dates: start: 20241203
  2. INFLECTRA [Suspect]
     Active Substance: INFLIXIMAB-DYYB
     Route: 042
     Dates: start: 20250128, end: 20250128
  3. INFLECTRA [Suspect]
     Active Substance: INFLIXIMAB-DYYB
     Route: 042
     Dates: start: 20250529
  4. PREDNISONE [Concomitant]
     Active Substance: PREDNISONE
     Dates: start: 2023

REACTIONS (7)
  - Micturition disorder [Recovered/Resolved]
  - Nephrectomy [Unknown]
  - Blood urine present [Recovering/Resolving]
  - Transitional cell carcinoma [Unknown]
  - Hypertension [Not Recovered/Not Resolved]
  - Off label use [Unknown]
  - Haematuria [Unknown]

NARRATIVE: CASE EVENT DATE: 20250128
